FAERS Safety Report 7664446-0 (Version None)
Quarter: 2011Q3

REPORT INFORMATION
  Report Type: 
  Country: None (occurrence: None)
  Receive Date: 20110806
  Receipt Date: 20110104
  Transmission Date: 20111222
  Serious: No
  Sender: FDA-Public Use
  Company Number: US-ABBOTT-11P-163-0695026-00

PATIENT
  Sex: Female
  Weight: 70.37 kg

DRUGS (7)
  1. NIASPAN [Suspect]
     Indication: LIPOPROTEIN (A) ABNORMAL
     Dates: start: 20101201
  2. NIASPAN [Suspect]
     Dosage: 500MG AT BEDTIME
  3. PREMARIN [Concomitant]
     Indication: PRODUCT USED FOR UNKNOWN INDICATION
  4. COZAAR [Concomitant]
     Indication: PRODUCT USED FOR UNKNOWN INDICATION
  5. VYTORIN [Concomitant]
     Indication: PRODUCT USED FOR UNKNOWN INDICATION
  6. ASPIRIN [Concomitant]
     Indication: PRODUCT USED FOR UNKNOWN INDICATION
  7. NIASPAN [Suspect]
     Dosage: 500MG AT BEDTIME
     Dates: start: 20101104

REACTIONS (2)
  - FEELING HOT [None]
  - FLUSHING [None]
